FAERS Safety Report 9516958 (Version 1)
Quarter: 2013Q1

REPORT INFORMATION
  Report Type: Spontaneous
  Country: US (occurrence: None)
  Receive Date: 20130305
  Receipt Date: 20130305
  Transmission Date: 20140127
  Serious: Yes (Other)
  Sender: FDA-Public Use
  Company Number: 163-21880-12081150

PATIENT
  Age: 94 Year
  Sex: Male

DRUGS (4)
  1. REVLIMID (LENALIDOMIDE) [Suspect]
     Indication: PLASMA CELL MYELOMA
     Route: 048
     Dates: start: 201011
  2. LISINOPRIL [Concomitant]
  3. ALLOPURINOL [Concomitant]
  4. COLCRYS (COLCHICINE) [Concomitant]

REACTIONS (4)
  - Asthenia [None]
  - Dysgeusia [None]
  - Paraesthesia [None]
  - Oedema peripheral [None]
